FAERS Safety Report 11561462 (Version 1)
Quarter: 2015Q3

REPORT INFORMATION
  Report Type: Spontaneous
  Country: US (occurrence: US)
  Receive Date: 20150928
  Receipt Date: 20150928
  Transmission Date: 20151125
  Serious: No
  Sender: FDA-Public Use
  Company Number: US-BAYER-2015-426861

PATIENT
  Age: 83 Year
  Sex: Female
  Weight: 68.93 kg

DRUGS (1)
  1. OXYTROL FOR WOMEN [Suspect]
     Active Substance: OXYBUTYNIN
     Indication: HYPERTONIC BLADDER
     Dosage: ONE PATCH IN EVERY 4 DAYS
     Route: 061
     Dates: start: 2014, end: 20150917

REACTIONS (5)
  - Dyspnoea [Recovered/Resolved]
  - Visual acuity reduced [Not Recovered/Not Resolved]
  - Hearing impaired [Not Recovered/Not Resolved]
  - Dizziness [Not Recovered/Not Resolved]
  - Vision blurred [Not Recovered/Not Resolved]

NARRATIVE: CASE EVENT DATE: 201503
